FAERS Safety Report 4790442-7 (Version None)
Quarter: 2005Q4

REPORT INFORMATION
  Report Type: 
  Country: None (occurrence: None)
  Receive Date: 20051005
  Receipt Date: 20050921
  Transmission Date: 20060501
  Serious: Yes (Other)
  Sender: FDA-Public Use
  Company Number: 2005132409

PATIENT
  Age: 80 Year
  Sex: Female

DRUGS (5)
  1. MACUGEN [Suspect]
     Indication: ILL-DEFINED DISORDER
     Dosage: 1 IN 6 WK, INTRAVITREOUS
     Dates: start: 20050613
  2. ARAVA [Concomitant]
  3. ATENOLOL [Concomitant]
  4. PRENISONE (PREDNISONE) [Concomitant]
  5. ZESTRIL [Concomitant]

REACTIONS (6)
  - BLOOD PRESSURE DECREASED [None]
  - DIARRHOEA [None]
  - DRUG HYPERSENSITIVITY [None]
  - LOSS OF CONSCIOUSNESS [None]
  - NAUSEA [None]
  - VISUAL ACUITY REDUCED [None]
